FAERS Safety Report 16866239 (Version 1)
Quarter: 2019Q3

REPORT INFORMATION
  Report Type: Spontaneous
  Country: US (occurrence: US)
  Receive Date: 20190930
  Receipt Date: 20190930
  Transmission Date: 20191005
  Serious: Yes (Hospitalization, Other)
  Sender: FDA-Public Use
  Company Number: US-SA-2019SA268643

PATIENT
  Age: 26 Year
  Sex: Female

DRUGS (1)
  1. DUPIXENT [Suspect]
     Active Substance: DUPILUMAB
     Indication: PRODUCT USED FOR UNKNOWN INDICATION
     Dosage: 200 MG, UNK
     Route: 058

REACTIONS (5)
  - Infection [Unknown]
  - Mouth haemorrhage [Unknown]
  - Pericardial effusion [Unknown]
  - Circulatory collapse [Unknown]
  - Mouth injury [Unknown]

NARRATIVE: CASE EVENT DATE: 201908
